FAERS Safety Report 7680832-7 (Version None)
Quarter: 2011Q3

REPORT INFORMATION
  Report Type: 
  Country: None (occurrence: None)
  Receive Date: 20110812
  Receipt Date: 20110727
  Transmission Date: 20111222
  Serious: Yes (Hospitalization)
  Sender: FDA-Public Use
  Company Number: FR-MERCK-1107FRA00139

PATIENT
  Age: 23 Year
  Sex: Male

DRUGS (5)
  1. TRAMADOL HCL [Suspect]
     Route: 048
  2. MYCOPHENOLATE MEFETIL [Suspect]
     Route: 048
     Dates: start: 20100813, end: 20110531
  3. ISRADIPINE [Suspect]
     Route: 048
     Dates: end: 20110601
  4. COZAAR [Suspect]
     Indication: HYPERTENSION
     Route: 048
     Dates: start: 20100813, end: 20110601
  5. CYCLOSPORINE [Suspect]
     Route: 048
     Dates: start: 20100813

REACTIONS (1)
  - AGRANULOCYTOSIS [None]
